FAERS Safety Report 7103383-7 (Version None)
Quarter: 2010Q4

REPORT INFORMATION
  Report Type: 
  Country: None (occurrence: None)
  Receive Date: 20101115
  Receipt Date: 20101103
  Transmission Date: 20110411
  Serious: Yes (Other)
  Sender: FDA-Public Use
  Company Number: PHEH2009US02426

PATIENT
  Sex: Female

DRUGS (6)
  1. ZOMETA [Suspect]
     Indication: NEOPLASM MALIGNANT
     Dosage: UNK
     Dates: start: 20050303
  2. ZOMETA [Suspect]
     Indication: METASTASES TO BONE
  3. TAXOTERE [Concomitant]
     Indication: BREAST CANCER
  4. GEMCITABINE [Concomitant]
  5. DECADRON                                /NET/ [Concomitant]
  6. VICODIN [Concomitant]

REACTIONS (43)
  - ABSCESS DRAINAGE [None]
  - ACTINOMYCOSIS [None]
  - ANHEDONIA [None]
  - ANXIETY [None]
  - ARTERIOSCLEROSIS [None]
  - BIFASCICULAR BLOCK [None]
  - BONE DISORDER [None]
  - BONE EROSION [None]
  - BUNDLE BRANCH BLOCK RIGHT [None]
  - CENTRAL VENOUS CATHETERISATION [None]
  - DEBRIDEMENT [None]
  - DEFORMITY [None]
  - DRY SKIN [None]
  - DYSGEUSIA [None]
  - DYSPHAGIA [None]
  - ELECTROCARDIOGRAM QRS COMPLEX PROLONGED [None]
  - ELECTROCARDIOGRAM ST SEGMENT ABNORMAL [None]
  - EMOTIONAL DISTRESS [None]
  - INFECTION [None]
  - INJURY [None]
  - INTERVERTEBRAL DISC DEGENERATION [None]
  - JAW FRACTURE [None]
  - JAW LESION EXCISION [None]
  - JAW OPERATION [None]
  - LIFE EXPECTANCY SHORTENED [None]
  - MASTECTOMY [None]
  - NODULE [None]
  - OEDEMA PERIPHERAL [None]
  - ORAL DISCOMFORT [None]
  - OSTEONECROSIS OF JAW [None]
  - OSTEOSCLEROSIS [None]
  - PAIN [None]
  - PAIN IN JAW [None]
  - PHYSICAL DISABILITY [None]
  - RADICAL NECK DISSECTION [None]
  - SEQUESTRECTOMY [None]
  - SINUS BRADYCARDIA [None]
  - SKIN PAPILLOMA [None]
  - SUBMANDIBULAR MASS [None]
  - SUPRAVENTRICULAR EXTRASYSTOLES [None]
  - TENDONITIS [None]
  - TOOTH DISORDER [None]
  - ULCER [None]
